FAERS Safety Report 22931708 (Version 2)
Quarter: 2024Q1

REPORT INFORMATION
  Report Type: Spontaneous
  Country: US (occurrence: US)
  Receive Date: 20230911
  Receipt Date: 20240226
  Transmission Date: 20240410
  Serious: No
  Sender: FDA-Public Use
  Company Number: US-SA-SAC20230907000352

PATIENT
  Age: 62 Year
  Sex: Female
  Weight: 61.68 kg

DRUGS (7)
  1. DUPIXENT [Suspect]
     Active Substance: DUPILUMAB
     Indication: Dermatitis atopic
     Dosage: 300 MG, QOW
     Route: 058
     Dates: start: 20230711
  2. XYZAL [Concomitant]
     Active Substance: LEVOCETIRIZINE DIHYDROCHLORIDE
     Dosage: UNK
  3. FLONASE ALLERGY RELIEF [Concomitant]
     Active Substance: FLUTICASONE PROPIONATE
     Dosage: UNK
  4. DUAVEE [BAZEDOXIFENE;ESTROGENS CONJUGATED] [Concomitant]
     Dosage: UNK; 0.45-20 MG
  5. ALBUTEROL SULFATE [Concomitant]
     Active Substance: ALBUTEROL SULFATE
     Dosage: UNK
  6. SINGULAIR [Concomitant]
     Active Substance: MONTELUKAST SODIUM
     Dosage: UNK
  7. PROZAC [Concomitant]
     Active Substance: FLUOXETINE HYDROCHLORIDE
     Dosage: UNK

REACTIONS (13)
  - Inflammation [Unknown]
  - Sleep disorder [Unknown]
  - Headache [Unknown]
  - Skin haemorrhage [Unknown]
  - Skin weeping [Unknown]
  - Dry skin [Unknown]
  - Contusion [Unknown]
  - Dysuria [Unknown]
  - Skin fissures [Unknown]
  - Skin exfoliation [Unknown]
  - Pruritus [Unknown]
  - Rash [Unknown]
  - Inappropriate schedule of product administration [Unknown]

NARRATIVE: CASE EVENT DATE: 20230101
